FAERS Safety Report 6714887-0 (Version None)
Quarter: 2010Q2

REPORT INFORMATION
  Report Type: 
  Country: None (occurrence: None)
  Receive Date: 20100507
  Receipt Date: 20100427
  Transmission Date: 20101027
  Serious: Yes (Other)
  Sender: FDA-Public Use
  Company Number: US-BAYER-201020771NA

PATIENT
  Age: 30 Year
  Sex: Female

DRUGS (1)
  1. MIRENA [Suspect]
     Indication: CONTRACEPTION
     Route: 015
     Dates: start: 20070301, end: 20090101

REACTIONS (5)
  - AMENORRHOEA [None]
  - INFERTILITY FEMALE [None]
  - LIBIDO DECREASED [None]
  - PELVIC PAIN [None]
  - VAGINAL HAEMORRHAGE [None]
